FAERS Safety Report 9382329 (Version 2)
Quarter: 2013Q3

REPORT INFORMATION
  Report Type: Spontaneous
  Country: JP (occurrence: JP)
  Receive Date: 20130703
  Receipt Date: 20130813
  Transmission Date: 20140515
  Serious: Yes (Hospitalization, Disabling)
  Sender: FDA-Public Use
  Company Number: JP-PFIZER INC-2013056930

PATIENT
  Age: 66 Year
  Sex: Female
  Weight: 31.6 kg

DRUGS (2)
  1. INLYTA [Suspect]
     Indication: RENAL CELL CARCINOMA
     Dosage: 5 MG, 2X/DAY
     Route: 048
     Dates: start: 20120919, end: 20130423
  2. INLYTA [Suspect]
     Dosage: 10 MG, DAILY
     Dates: start: 20130427

REACTIONS (2)
  - Hypothyroidism [Recovering/Resolving]
  - Lung disorder [Recovered/Resolved]
